FAERS Safety Report 7469235-8 (Version None)
Quarter: 2011Q2

REPORT INFORMATION
  Report Type: 
  Country: None (occurrence: None)
  Receive Date: 20110510
  Receipt Date: 20110505
  Transmission Date: 20111010
  Serious: Yes (Death)
  Sender: FDA-Public Use
  Company Number: US-ASTELLAS-2011US002062

PATIENT
  Sex: Male

DRUGS (1)
  1. MYCAMINE [Suspect]
     Indication: DEVICE RELATED INFECTION
     Dosage: 100 MG, UNKNOWN/D
     Route: 042
     Dates: start: 20110422, end: 20110424

REACTIONS (1)
  - DEATH [None]
